FAERS Safety Report 13494960 (Version 2)
Quarter: 2017Q2

REPORT INFORMATION
  Report Type: Spontaneous
  Country: JP (occurrence: JP)
  Receive Date: 20170428
  Receipt Date: 20170522
  Transmission Date: 20170830
  Serious: Yes (Other)
  Sender: FDA-Public Use
  Company Number: JP-ROCHE-1924938

PATIENT
  Age: 54 Year
  Sex: Male

DRUGS (16)
  1. RITUXAN [Suspect]
     Active Substance: RITUXIMAB
     Dosage: 10 MG/ML
     Route: 042
     Dates: start: 2009
  2. CYCLOPHOSPHAMIDE. [Suspect]
     Active Substance: CYCLOPHOSPHAMIDE
     Route: 065
     Dates: start: 2009
  3. IFOSFAMIDE. [Suspect]
     Active Substance: IFOSFAMIDE
     Indication: DIFFUSE LARGE B-CELL LYMPHOMA
     Route: 065
  4. CYTARABINE. [Suspect]
     Active Substance: CYTARABINE
     Route: 065
     Dates: start: 20090127
  5. VINCRISTINE SULFATE. [Suspect]
     Active Substance: VINCRISTINE SULFATE
     Indication: DIFFUSE LARGE B-CELL LYMPHOMA
     Route: 065
     Dates: start: 2007
  6. PREDNISOLONE. [Suspect]
     Active Substance: PREDNISOLONE
     Indication: DIFFUSE LARGE B-CELL LYMPHOMA
     Route: 065
     Dates: start: 2007
  7. CYTARABINE. [Suspect]
     Active Substance: CYTARABINE
     Indication: DIFFUSE LARGE B-CELL LYMPHOMA
     Route: 065
     Dates: start: 2009
  8. MELPHALAN. [Suspect]
     Active Substance: MELPHALAN
     Indication: DIFFUSE LARGE B-CELL LYMPHOMA
     Route: 065
     Dates: start: 20090107
  9. DOXORUBICIN HYDROCHLORIDE. [Suspect]
     Active Substance: DOXORUBICIN HYDROCHLORIDE
     Indication: DIFFUSE LARGE B-CELL LYMPHOMA
     Route: 065
     Dates: start: 2007
  10. ETOPOSIDE. [Suspect]
     Active Substance: ETOPOSIDE
     Indication: DIFFUSE LARGE B-CELL LYMPHOMA
     Route: 065
     Dates: start: 2009
  11. DEXAMETHASONE SODIUM PHOSPHATE. [Suspect]
     Active Substance: DEXAMETHASONE SODIUM PHOSPHATE
     Indication: DIFFUSE LARGE B-CELL LYMPHOMA
     Route: 065
     Dates: start: 2009
  12. RANIMUSTINE [Suspect]
     Active Substance: RANIMUSTINE
     Indication: DIFFUSE LARGE B-CELL LYMPHOMA
     Route: 065
     Dates: start: 20090107
  13. RITUXAN [Suspect]
     Active Substance: RITUXIMAB
     Indication: DIFFUSE LARGE B-CELL LYMPHOMA
     Dosage: 10 MG/ML
     Route: 042
     Dates: start: 2007
  14. CYCLOPHOSPHAMIDE. [Suspect]
     Active Substance: CYCLOPHOSPHAMIDE
     Indication: DIFFUSE LARGE B-CELL LYMPHOMA
     Route: 065
     Dates: start: 2007
  15. ETOPOSIDE. [Suspect]
     Active Substance: ETOPOSIDE
     Route: 065
  16. CARBOPLATIN. [Suspect]
     Active Substance: CARBOPLATIN
     Indication: DIFFUSE LARGE B-CELL LYMPHOMA
     Route: 065

REACTIONS (2)
  - Myelodysplastic syndrome [Unknown]
  - Extranodal marginal zone B-cell lymphoma (MALT type) [Recovering/Resolving]

NARRATIVE: CASE EVENT DATE: 2011
